FAERS Safety Report 15667374 (Version 1)
Quarter: 2018Q4

REPORT INFORMATION
  Report Type: Spontaneous
  Country: JP (occurrence: JP)
  Receive Date: 20181128
  Receipt Date: 20181128
  Transmission Date: 20190205
  Serious: Yes (Disabling, Other)
  Sender: FDA-Public Use
  Company Number: JP-PFIZER INC-2018483783

PATIENT
  Age: 38 Year
  Sex: Female

DRUGS (1)
  1. ZITHROMAC 250MG [Suspect]
     Active Substance: AZITHROMYCIN DIHYDRATE
     Dosage: 1 DF, UNK
     Dates: start: 200807

REACTIONS (4)
  - Visual impairment [Unknown]
  - Keratitis [Unknown]
  - Drug-induced liver injury [Unknown]
  - Toxic epidermal necrolysis [Unknown]
